FAERS Safety Report 4924369-4 (Version None)
Quarter: 2006Q1

REPORT INFORMATION
  Report Type: 
  Country: None (occurrence: None)
  Receive Date: 20060227
  Receipt Date: 20060125
  Transmission Date: 20060701
  Serious: No
  Sender: FDA-Public Use
  Company Number: US-GLAXOSMITHKLINE-A0590918A

PATIENT
  Age: 62 Year
  Sex: Female

DRUGS (1)
  1. WELLBUTRIN XL [Suspect]
     Indication: DEPRESSION
     Dosage: 300MG PER DAY
     Route: 048

REACTIONS (6)
  - ANTINUCLEAR ANTIBODY POSITIVE [None]
  - CARDIAC MURMUR [None]
  - FLUSHING [None]
  - HEADACHE [None]
  - HEART RATE INCREASED [None]
  - PHOTOSENSITIVITY REACTION [None]
